FAERS Safety Report 4610108-3 (Version None)
Quarter: 2005Q1

REPORT INFORMATION
  Report Type: 
  Country: None (occurrence: None)
  Receive Date: 20050316
  Receipt Date: 20040714
  Transmission Date: 20050727
  Serious: No
  Sender: FDA-Public Use
  Company Number: US-GLAXOSMITHKLINE-A0518591A

PATIENT
  Age: 57 Year
  Sex: Male

DRUGS (2)
  1. COMPAZINE [Suspect]
     Indication: NAUSEA
     Route: 065
  2. CHEMOTHERAPY [Concomitant]
     Route: 065

REACTIONS (1)
  - DRUG INEFFECTIVE [None]
